FAERS Safety Report 6265895-8 (Version None)
Quarter: 2009Q3

REPORT INFORMATION
  Report Type: 
  Country: None (occurrence: None)
  Receive Date: 20090709
  Receipt Date: 20090709
  Transmission Date: 20100115
  Serious: Yes (Death, Hospitalization)
  Sender: FDA-Public Use
  Company Number: None

PATIENT
  Age: 62 Year
  Sex: Male
  Weight: 78.1 kg

DRUGS (2)
  1. DASATINIB 50 MG [Suspect]
     Indication: NON-SMALL CELL LUNG CANCER
     Dosage: 140 MG QD PO
     Route: 048
     Dates: start: 20090507, end: 20090612
  2. DASATINIB 20 MG [Suspect]

REACTIONS (5)
  - DEHYDRATION [None]
  - DISEASE PROGRESSION [None]
  - FAILURE TO THRIVE [None]
  - NAUSEA [None]
  - VOMITING [None]
